FAERS Safety Report 8415170-8 (Version None)
Quarter: 2012Q2

REPORT INFORMATION
  Report Type: 
  Country: None (occurrence: None)
  Receive Date: 20120606
  Receipt Date: 20120530
  Transmission Date: 20120825
  Serious: No
  Sender: FDA-Public Use
  Company Number: US-PFIZER INC-2012104656

PATIENT
  Sex: Female
  Weight: 109 kg

DRUGS (2)
  1. LO/OVRAL-28 [Suspect]
     Indication: MENSTRUAL DISCOMFORT
  2. LO/OVRAL-28 [Suspect]
     Indication: OFF LABEL USE
     Dosage: ONE WHITE TABLET DAILY CONTINUOUSLY
     Route: 048

REACTIONS (3)
  - INAPPROPRIATE SCHEDULE OF DRUG ADMINISTRATION [None]
  - DRUG INEFFECTIVE FOR UNAPPROVED INDICATION [None]
  - METRORRHAGIA [None]
